FAERS Safety Report 21440513 (Version 5)
Quarter: 2023Q1

REPORT INFORMATION
  Report Type: Report from Study
  Country: US (occurrence: US)
  Receive Date: 20221011
  Receipt Date: 20230310
  Transmission Date: 20230418
  Serious: Yes (Hospitalization, Other)
  Sender: FDA-Public Use
  Company Number: US-KYOWAKIRIN-2022BKK015725

PATIENT

DRUGS (2)
  1. NOURIANZ [Suspect]
     Active Substance: ISTRADEFYLLINE
     Indication: Parkinson^s disease
     Dosage: 20 MG, QD
     Route: 048
     Dates: start: 20211202
  2. NOURIANZ [Suspect]
     Active Substance: ISTRADEFYLLINE
     Dosage: 20 MG, QD
     Route: 048
     Dates: start: 20211203

REACTIONS (6)
  - Abdominal pain [Unknown]
  - Haematuria [Unknown]
  - Constipation [Unknown]
  - Catheter site related reaction [Unknown]
  - Hallucination [Unknown]
  - Fatigue [Unknown]

NARRATIVE: CASE EVENT DATE: 20220801
